FAERS Safety Report 14309714 (Version 2)
Quarter: 2018Q1

REPORT INFORMATION
  Report Type: Spontaneous
  Country: JP (occurrence: JP)
  Receive Date: 20171220
  Receipt Date: 20180117
  Transmission Date: 20180509
  Serious: Yes (Life-Threatening, Hospitalization, Disabling)
  Sender: FDA-Public Use
  Company Number: JP-DSJP-DSJ-2017-127894

PATIENT

DRUGS (9)
  1. BISOPROLOL FUMARATE. [Concomitant]
     Active Substance: BISOPROLOL FUMARATE
     Indication: ARRHYTHMIA
     Dosage: 1.25 MG, QD
     Route: 048
     Dates: end: 20170801
  2. ONEALFA [Concomitant]
     Active Substance: ALFACALCIDOL
     Indication: OSTEOPOROSIS
     Dosage: 1.0 ?G, QD
     Route: 048
     Dates: end: 20170801
  3. BISOPROLOL FUMARATE. [Concomitant]
     Active Substance: BISOPROLOL FUMARATE
     Indication: HYPERTENSION
  4. LIXIANA TABLETS 30MG [Suspect]
     Active Substance: EDOXABAN TOSYLATE
     Indication: ATRIAL FIBRILLATION
     Dosage: 30 MG, QD
     Route: 048
     Dates: end: 20170801
  5. CHOREITO                           /07491001/ [Concomitant]
     Dosage: 5.0 G, BID
     Route: 048
     Dates: end: 20170801
  6. ENSURE [Concomitant]
     Active Substance: AMINO ACIDS\DEXTROSE\ELECTROLYTES NOS\SOYBEAN OIL\VITAMINS
     Dosage: 250 ML, QD
     Route: 048
     Dates: end: 20170801
  7. LANSOPRAZOLE. [Concomitant]
     Active Substance: LANSOPRAZOLE
     Dosage: 15 MG, QD
     Route: 048
     Dates: end: 20170801
  8. MAGMITT [Concomitant]
     Active Substance: MAGNESIUM OXIDE
     Indication: CONSTIPATION
     Dosage: 250 MG, TID
     Route: 048
     Dates: end: 20170801
  9. COCARL [Concomitant]
     Active Substance: ACETAMINOPHEN
     Dosage: 200 MG, BID
     Route: 048
     Dates: end: 20170801

REACTIONS (4)
  - Coagulation time prolonged [Recovering/Resolving]
  - Putamen haemorrhage [Recovered/Resolved with Sequelae]
  - Brain herniation [Recovered/Resolved with Sequelae]
  - Anaemia [Recovering/Resolving]

NARRATIVE: CASE EVENT DATE: 20170802
